FAERS Safety Report 6536502-1 (Version None)
Quarter: 2010Q1

REPORT INFORMATION
  Report Type: 
  Country: None (occurrence: None)
  Receive Date: 20100113
  Receipt Date: 20100105
  Transmission Date: 20100710
  Serious: Yes (Other)
  Sender: FDA-Public Use
  Company Number: JP-ROCHE-674710

PATIENT
  Sex: Female

DRUGS (12)
  1. ANEXATE [Suspect]
     Dosage: ROUTE:UNSPECIFIED INTRAVENOUS
     Route: 042
     Dates: start: 20091201, end: 20091201
  2. DORMICUM (INJ) [Suspect]
     Dosage: ROUTE:UNSPECIFIED INTRAVENOUS
     Route: 042
     Dates: start: 20091201, end: 20091201
  3. MYSLEE [Suspect]
     Indication: INSOMNIA
     Route: 048
  4. ABILIT [Concomitant]
     Indication: DEPRESSION
     Dosage: ROUTE:ORAL NOS
     Route: 048
  5. SOLANAX [Concomitant]
     Indication: DEPRESSION
     Route: 048
  6. DEPAS [Concomitant]
     Indication: DEPRESSION
     Dosage: ROUTE:ORAL NOS
     Route: 048
  7. ROHIPNOL [Concomitant]
     Indication: INSOMNIA
     Dosage: ROUTE:ORAL NOS
     Route: 048
  8. TETRAMIDE [Concomitant]
     Indication: DEPRESSION
     Dosage: ROUTE:ORAL NOS
     Route: 048
  9. BUSCOPAN [Concomitant]
     Dosage: FORM:INJECTION.
     Dates: start: 20091111, end: 20091201
  10. GASCON [Concomitant]
     Route: 048
     Dates: start: 20090611, end: 20091201
  11. PRONASE [Concomitant]
     Dosage: DRUG: PRONASE MS
     Dates: start: 20090611, end: 20091201
  12. XYLOCAINE [Concomitant]
     Dosage: FORM: SPRAY
     Dates: start: 20090611, end: 20091201

REACTIONS (2)
  - MUSCULOSKELETAL STIFFNESS [None]
  - UNRESPONSIVE TO STIMULI [None]
